FAERS Safety Report 21914964 (Version 1)
Quarter: 2023Q1

REPORT INFORMATION
  Report Type: Spontaneous
  Country: US (occurrence: US)
  Receive Date: 20230126
  Receipt Date: 20230126
  Transmission Date: 20230418
  Serious: No
  Sender: FDA-Public Use
  Company Number: US-CATALYST PHARMACEUTICALS, INC-2022CAT00421

PATIENT
  Sex: Female
  Weight: 81.633 kg

DRUGS (2)
  1. FIRDAPSE [Suspect]
     Active Substance: AMIFAMPRIDINE PHOSPHATE
     Indication: Myasthenic syndrome
     Dosage: UNK
     Route: 048
     Dates: start: 20190131, end: 201910
  2. FIRDAPSE [Suspect]
     Active Substance: AMIFAMPRIDINE PHOSPHATE
     Dosage: 2 TABLETS (20 MG), 4X/DAY
     Route: 048
     Dates: start: 20220303

REACTIONS (1)
  - Abdominal pain upper [Not Recovered/Not Resolved]

NARRATIVE: CASE EVENT DATE: 20220101
